FAERS Safety Report 18851617 (Version 1)
Quarter: 2021Q1

REPORT INFORMATION
  Report Type: Spontaneous
  Country: FR (occurrence: FR)
  Receive Date: 20210205
  Receipt Date: 20210205
  Transmission Date: 20210420
  Serious: Yes (Hospitalization)
  Sender: FDA-Public Use
  Company Number: NVSC2021FR024402

PATIENT
  Age: 30 Year
  Sex: Female

DRUGS (1)
  1. ETANERCEPT [Suspect]
     Active Substance: ETANERCEPT
     Indication: SPONDYLITIS
     Dosage: 1 DF
     Route: 058
     Dates: start: 2020

REACTIONS (1)
  - Glioma [Not Recovered/Not Resolved]

NARRATIVE: CASE EVENT DATE: 202012
